FAERS Safety Report 7585303-4 (Version None)
Quarter: 2011Q2

REPORT INFORMATION
  Report Type: 
  Country: None (occurrence: None)
  Receive Date: 20110628
  Receipt Date: 20110628
  Transmission Date: 20111010
  Serious: Yes (Hospitalization)
  Sender: FDA-Public Use
  Company Number: None

PATIENT
  Age: 51 Year
  Sex: Female
  Weight: 74.3899 kg

DRUGS (1)
  1. LEVAQUIN [Suspect]
     Indication: PHARYNGITIS
     Dosage: 1 TABLET DAILY PO
     Route: 048
     Dates: start: 20110412, end: 20110418

REACTIONS (5)
  - MALAISE [None]
  - ABDOMINAL PAIN UPPER [None]
  - HEADACHE [None]
  - DIZZINESS [None]
  - CHEST PAIN [None]
